FAERS Safety Report 4528985-3 (Version None)
Quarter: 2004Q4

REPORT INFORMATION
  Report Type: 
  Country: None (occurrence: None)
  Receive Date: 20041216
  Receipt Date: 20021010
  Transmission Date: 20050328
  Serious: Yes (Hospitalization)
  Sender: FDA-Public Use
  Company Number: GB-GLAXOSMITHKLINE-B0282272A

PATIENT
  Sex: Male

DRUGS (4)
  1. SEROXAT [Suspect]
     Indication: ANXIETY
     Route: 048
     Dates: start: 20011001
  2. CO-CODAMOL [Concomitant]
  3. NITRAZEPAM [Concomitant]
  4. AMITRIPTYLINE HCL [Concomitant]

REACTIONS (16)
  - ABNORMAL BEHAVIOUR [None]
  - AGGRESSION [None]
  - AGITATION [None]
  - ANXIETY [None]
  - EJACULATION FAILURE [None]
  - ELECTRIC SHOCK [None]
  - HYPERHIDROSIS [None]
  - ILL-DEFINED DISORDER [None]
  - IRRITABILITY [None]
  - MANIA [None]
  - OVERDOSE [None]
  - PSYCHIATRIC SYMPTOM [None]
  - SELF ESTEEM DECREASED [None]
  - SELF-INJURIOUS IDEATION [None]
  - SUICIDE ATTEMPT [None]
  - VERBAL ABUSE [None]
